FAERS Safety Report 17858959 (Version 1)
Quarter: 2020Q2

REPORT INFORMATION
  Report Type: Spontaneous
  Country: US (occurrence: US)
  Receive Date: 20200604
  Receipt Date: 20200604
  Transmission Date: 20200714
  Serious: No
  Sender: FDA-Public Use
  Company Number: US-ROCHE-2611841

PATIENT
  Age: 61 Year
  Sex: Male
  Weight: 187 kg

DRUGS (24)
  1. LYRICA [Concomitant]
     Active Substance: PREGABALIN
     Dosage: 30 DAYS
     Route: 048
     Dates: start: 20190930
  2. LYRICA [Concomitant]
     Active Substance: PREGABALIN
     Dosage: 30 DAYS
     Route: 048
     Dates: start: 20190827
  3. LYRICA [Concomitant]
     Active Substance: PREGABALIN
     Dosage: 30 DAYS
     Route: 048
     Dates: start: 20181028
  4. LYRICA [Concomitant]
     Active Substance: PREGABALIN
     Dosage: 30 DAYS
     Route: 048
     Dates: start: 20180720
  5. LORAZEPAM. [Concomitant]
     Active Substance: LORAZEPAM
     Dosage: FOR 3 DAYS
     Route: 048
     Dates: start: 20200130
  6. LORAZEPAM. [Concomitant]
     Active Substance: LORAZEPAM
     Dosage: FOR 30 DAYS
     Route: 048
     Dates: start: 20190315
  7. LORAZEPAM. [Concomitant]
     Active Substance: LORAZEPAM
     Dosage: FOR 30 DAYS
     Route: 048
     Dates: start: 20190215
  8. TRAMADOL HCL [Concomitant]
     Active Substance: TRAMADOL HYDROCHLORIDE
     Dosage: 7 DAYS
     Route: 048
     Dates: start: 20190303
  9. LORAZEPAM. [Concomitant]
     Active Substance: LORAZEPAM
     Dosage: FOR 30 DAYS
     Route: 048
     Dates: start: 20180616
  10. LYRICA [Concomitant]
     Active Substance: PREGABALIN
     Dosage: 30 DAYS
     Route: 048
     Dates: start: 20190415
  11. LYRICA [Concomitant]
     Active Substance: PREGABALIN
     Dosage: 30 DAYS
     Route: 048
     Dates: start: 20181028
  12. LORAZEPAM. [Concomitant]
     Active Substance: LORAZEPAM
     Dosage: FOR 30 DAYS
     Route: 048
     Dates: start: 20190827
  13. LORAZEPAM. [Concomitant]
     Active Substance: LORAZEPAM
     Dosage: FOR 30 DAYS
     Route: 048
     Dates: start: 20190415
  14. LYRICA [Concomitant]
     Active Substance: PREGABALIN
     Dosage: 30 DAYS
     Route: 048
     Dates: start: 20180917
  15. OCREVUS [Suspect]
     Active Substance: OCRELIZUMAB
     Indication: RELAPSING-REMITTING MULTIPLE SCLEROSIS
     Route: 065
  16. LORAZEPAM. [Concomitant]
     Active Substance: LORAZEPAM
     Dosage: FOR 30 DAYS
     Route: 048
     Dates: start: 20191028
  17. TRAMADOL HCL [Concomitant]
     Active Substance: TRAMADOL HYDROCHLORIDE
     Dosage: 7 DAYS
     Route: 048
     Dates: start: 20180720
  18. LYRICA [Concomitant]
     Active Substance: PREGABALIN
     Dosage: 30 DAYS
     Route: 048
     Dates: start: 20190315
  19. TRAMADOL HCL [Concomitant]
     Active Substance: TRAMADOL HYDROCHLORIDE
     Dosage: 7 DAYS
     Route: 048
     Dates: start: 20180917
  20. VIRTUSSIN AC [Concomitant]
     Active Substance: CODEINE PHOSPHATE\GUAIFENESIN
     Dosage: 10 TO 100 MG/5 ML FOR 3 DAYS
     Route: 065
     Dates: start: 20200207
  21. LORAZEPAM. [Concomitant]
     Active Substance: LORAZEPAM
     Dosage: FOR 30 DAYS
     Route: 048
     Dates: start: 20180916
  22. LYRICA [Concomitant]
     Active Substance: PREGABALIN
     Dosage: 30 DAYS
     Route: 048
     Dates: start: 20191218
  23. LYRICA [Concomitant]
     Active Substance: PREGABALIN
     Dosage: 30 DAYS
     Route: 048
     Dates: start: 20190527
  24. LYRICA [Concomitant]
     Active Substance: PREGABALIN
     Dosage: 30 DAYS
     Route: 048
     Dates: start: 20190215

REACTIONS (8)
  - Hypoaesthesia [Unknown]
  - JC polyomavirus test positive [Unknown]
  - Blood pressure increased [Unknown]
  - Paraesthesia [Unknown]
  - Muscular weakness [Unknown]
  - Balance disorder [Unknown]
  - Insomnia [Unknown]
  - Fall [Unknown]

NARRATIVE: CASE EVENT DATE: 20200416
